FAERS Safety Report 5632831-4 (Version None)
Quarter: 2008Q1

REPORT INFORMATION
  Report Type: 
  Country: None (occurrence: None)
  Receive Date: 20080221
  Receipt Date: 20080218
  Transmission Date: 20080703
  Serious: Yes (Life-Threatening, Hospitalization)
  Sender: FDA-Public Use
  Company Number: JP-BRISTOL-MYERS SQUIBB COMPANY-14083497

PATIENT
  Age: 68 Year
  Sex: Female

DRUGS (6)
  1. TAXOL [Suspect]
     Indication: UTERINE CANCER
     Dosage: CYCLE 2 ON 23-MAY-2007 AND CYCLE 3 ON 18-JUN-2007
     Route: 041
     Dates: start: 20070330, end: 20070330
  2. PARAPLATIN [Suspect]
     Indication: UTERINE CANCER
     Dosage: CYCLE 2 ON 23-MAY-2007 AND CYCLE 3 ON 18-JUN-2007
     Route: 041
     Dates: start: 20070330, end: 20070330
  3. FARMORUBICINE [Suspect]
     Indication: UTERINE CANCER
     Dosage: CYCLE 2 ON 23-MAY-2007 AND CYCLE 3 ON 18-JUN-2007
     Route: 041
     Dates: start: 20070330, end: 20070330
  4. DEXAMETHASONE SODIUM PHOSPHATE [Concomitant]
     Route: 042
     Dates: start: 20070330, end: 20070618
  5. DIPHENHYDRAMINE HCL [Concomitant]
     Route: 048
     Dates: start: 20070330, end: 20070618
  6. RANITIDINE HCL [Concomitant]
     Route: 042
     Dates: start: 20070330, end: 20070618

REACTIONS (3)
  - NEUTROPHIL COUNT DECREASED [None]
  - POSTOPERATIVE WOUND INFECTION [None]
  - WHITE BLOOD CELL COUNT DECREASED [None]
